FAERS Safety Report 4498852-2 (Version None)
Quarter: 2004Q4

REPORT INFORMATION
  Report Type: 
  Country: None (occurrence: None)
  Receive Date: 20041110
  Receipt Date: 20041110
  Transmission Date: 20050328
  Serious: Yes (Life-Threatening, Hospitalization)
  Sender: FDA-Public Use
  Company Number: None

PATIENT
  Age: 66 Year
  Sex: Male
  Weight: 58 kg

DRUGS (16)
  1. GEMCITABINE 1000 MG/M2 [Suspect]
     Indication: LUNG NEOPLASM MALIGNANT
     Dosage: 1000 MG/M2
  2. CARBOPLATIN [Suspect]
     Dosage: AUC 5.5
  3. ALBUTEROL [Concomitant]
  4. DOCUSATE [Concomitant]
  5. VENLAFAXINE [Concomitant]
  6. SINUSOID [Concomitant]
  7. PAXIL [Concomitant]
  8. OMEPRAZOLE [Concomitant]
  9. M.V.I. [Concomitant]
  10. MIDODRINE HCL [Concomitant]
  11. ATROPINE [Concomitant]
  12. HALOPERIDOL [Concomitant]
  13. GUAIFENESIN [Concomitant]
  14. CLONAZEPAM [Concomitant]
  15. MS CONTIN [Concomitant]
  16. OXYCODONE HCL [Concomitant]

REACTIONS (5)
  - FEBRILE NEUTROPENIA [None]
  - FLAVOBACTERIUM INFECTION [None]
  - HAEMOPTYSIS [None]
  - SPUTUM CULTURE POSITIVE [None]
  - THROMBOCYTOPENIA [None]
